FAERS Safety Report 15979578 (Version 6)
Quarter: 2019Q3

REPORT INFORMATION
  Report Type: Spontaneous
  Country: US (occurrence: US)
  Receive Date: 20190219
  Receipt Date: 20190731
  Transmission Date: 20191004
  Serious: No
  Sender: FDA-Public Use
  Company Number: US-PFIZER INC-2019074073

PATIENT
  Age: 75 Year
  Sex: Male
  Weight: 96.16 kg

DRUGS (13)
  1. GABAPENTIN. [Concomitant]
     Active Substance: GABAPENTIN
     Indication: RESTLESS LEGS SYNDROME
     Dosage: UNK, AS NEEDED
  2. SYNTHROID [Concomitant]
     Active Substance: LEVOTHYROXINE SODIUM
     Indication: HORMONE THERAPY
     Dosage: 112 UG, 1X/DAY
     Route: 048
  3. VITAMIN B12 [Concomitant]
     Active Substance: CYANOCOBALAMIN
     Indication: SUPPLEMENTATION THERAPY
     Dosage: 1000 UG, ALTERNATE DAY (EVERY OTHER DAY)
     Route: 048
  4. TESTOSTERONE. [Concomitant]
     Active Substance: TESTOSTERONE
     Indication: HORMONE THERAPY
     Dosage: UNK(INJECTION TWICE A MONTH)
  5. VITAMIN D3 [Concomitant]
     Active Substance: CHOLECALCIFEROL
     Indication: HYPOTHALAMO-PITUITARY DISORDER
     Dosage: 50 UG, DAILY
  6. PAROXETIN [PAROXETINE HYDROCHLORIDE] [Concomitant]
     Active Substance: PAROXETINE HYDROCHLORIDE
     Indication: MIGRAINE
     Dosage: 30 MG, 1X/DAY
     Route: 048
  7. POTASSIUM [Concomitant]
     Active Substance: POTASSIUM
     Indication: SUPPLEMENTATION THERAPY
     Dosage: 20 MEQ, 1X/DAY
     Route: 048
  8. GENOTROPIN [Suspect]
     Active Substance: SOMATROPIN
     Indication: GROWTH HORMONE DEFICIENCY
     Dosage: 5 MG, ONCE A DAY
     Route: 058
  9. VITAMIN B12 [Concomitant]
     Active Substance: CYANOCOBALAMIN
     Indication: HYPOTHALAMO-PITUITARY DISORDER
     Dosage: 1000 IU, DAILY
  10. GENOTROPIN [Suspect]
     Active Substance: SOMATROPIN
     Indication: HYPOTHALAMO-PITUITARY DISORDER
     Dosage: 0.2 MG, ONCE A DAY
     Route: 058
     Dates: start: 201812
  11. PREDNISONE. [Concomitant]
     Active Substance: PREDNISONE
     Indication: STEROID THERAPY
     Dosage: 10 MG, 1X/DAY(5MG 2 TABLETS IN THE MORNING)
     Route: 048
  12. VITAMIN D3 [Concomitant]
     Active Substance: CHOLECALCIFEROL
     Indication: BONE DISORDER
     Dosage: 50 UG, UNK(EVERY OTHER DAY TO EVERY 3RD DAY)
     Route: 048
  13. ZINC. [Concomitant]
     Active Substance: ZINC
     Indication: SUPPLEMENTATION THERAPY
     Dosage: UNK, ALTERNATE DAY (EVERY OTHER DAY)
     Route: 048

REACTIONS (8)
  - Device issue [Unknown]
  - Depressed mood [Unknown]
  - Malaise [Unknown]
  - Nausea [Unknown]
  - Incorrect dose administered [Unknown]
  - Psychiatric symptom [Unknown]
  - Fatigue [Unknown]
  - Somnolence [Unknown]
